FAERS Safety Report 16932637 (Version 1)
Quarter: 2019Q4

REPORT INFORMATION
  Report Type: Spontaneous
  Country: CZ (occurrence: CZ)
  Receive Date: 20191017
  Receipt Date: 20191017
  Transmission Date: 20200122
  Serious: Yes (Other)
  Sender: FDA-Public Use
  Company Number: CZ-009507513-1908CZE012815

PATIENT

DRUGS (10)
  1. EWOFEX [Concomitant]
     Indication: ASTHMA
     Dosage: UNK
  2. BERODUAL [Concomitant]
     Active Substance: FENOTEROL HYDROBROMIDE\IPRATROPIUM BROMIDE
     Indication: ASTHMA
     Dosage: UNK UNK, PRN
  3. ERDOMED [Concomitant]
     Active Substance: ERDOSTEINE
     Indication: ASTHMA
     Dosage: UNK
  4. MOMMOX [Concomitant]
     Active Substance: MOMETASONE FUROATE
     Indication: ASTHMA
     Dosage: UNK
  5. SINGULAIR [Suspect]
     Active Substance: MONTELUKAST SODIUM
     Indication: PRODUCT USED FOR UNKNOWN INDICATION
     Dosage: UNK
     Route: 048
  6. BUDIAIR [Concomitant]
     Active Substance: BUDESONIDE
     Indication: ASTHMA
     Dosage: UNK
  7. SYMBICORT [Concomitant]
     Active Substance: BUDESONIDE\FORMOTEROL FUMARATE DIHYDRATE
     Indication: ASTHMA
     Dosage: UNK
  8. THEOPHYLLINE [Suspect]
     Active Substance: THEOPHYLLINE ANHYDROUS
     Indication: PRODUCT USED FOR UNKNOWN INDICATION
     Dosage: UNK
  9. MEDROL [Suspect]
     Active Substance: METHYLPREDNISOLONE
     Indication: PRODUCT USED FOR UNKNOWN INDICATION
     Dosage: UNK
  10. MEPOLIZUMAB [Suspect]
     Active Substance: MEPOLIZUMAB
     Indication: PRODUCT USED FOR UNKNOWN INDICATION
     Dosage: 100 MG, UNK
     Route: 058
     Dates: start: 20190614

REACTIONS (5)
  - Type III immune complex mediated reaction [Unknown]
  - Skin reaction [Recovered/Resolved]
  - Arthralgia [Unknown]
  - Vasculitis [Unknown]
  - Rash [Not Recovered/Not Resolved]

NARRATIVE: CASE EVENT DATE: 20190616
